FAERS Safety Report 9499132 (Version 3)
Quarter: 2013Q4

REPORT INFORMATION
  Report Type: Spontaneous
  Country: US (occurrence: US)
  Receive Date: 20130904
  Receipt Date: 20131022
  Transmission Date: 20140711
  Serious: No
  Sender: FDA-Public Use
  Company Number: US-009507513-1308USA013853

PATIENT
  Age: 50 Year
  Sex: Male

DRUGS (5)
  1. ISENTRESS [Suspect]
     Indication: HIV TEST POSITIVE
     Dosage: 400 MG, TWICE DAILY
     Route: 048
     Dates: end: 20130827
  2. ISENTRESS [Suspect]
     Dosage: UNK
     Route: 048
     Dates: start: 2013
  3. PREZISTA [Concomitant]
  4. NORVIR [Concomitant]
  5. INTELENCE [Concomitant]

REACTIONS (1)
  - Rash generalised [Recovered/Resolved]
